FAERS Safety Report 4589685-7 (Version None)
Quarter: 2005Q1

REPORT INFORMATION
  Report Type: 
  Country: None (occurrence: None)
  Receive Date: 20050217
  Receipt Date: 20050202
  Transmission Date: 20050727
  Serious: Yes (Other)
  Sender: FDA-Public Use
  Company Number: 200500197

PATIENT
  Age: 16 Year
  Sex: Female

DRUGS (5)
  1. BOTOX [Suspect]
     Indication: DYSTONIA
     Dosage: 300 UNITS PRN IM
     Route: 030
     Dates: start: 20030227, end: 20030227
  2. BOTOX [Suspect]
     Indication: MUSCLE SPASTICITY
     Dosage: 300 UNITS PRN IM
     Route: 030
     Dates: start: 20030227, end: 20030227
  3. TEGRETOL [Concomitant]
  4. ZANAFLEX [Concomitant]
  5. ARTANE [Concomitant]

REACTIONS (3)
  - CONVULSION [None]
  - INFLUENZA LIKE ILLNESS [None]
  - TENSION [None]
